FAERS Safety Report 6992393-6 (Version None)
Quarter: 2010Q3

REPORT INFORMATION
  Report Type: 
  Country: None (occurrence: None)
  Receive Date: 20100917
  Receipt Date: 20100907
  Transmission Date: 20110219
  Serious: Yes (Other)
  Sender: FDA-Public Use
  Company Number: US-PFIZER INC-2010113157

PATIENT
  Sex: Female
  Weight: 56.689 kg

DRUGS (4)
  1. NEURONTIN [Suspect]
     Indication: FIBROMYALGIA
     Dosage: 400 MG, UNK
     Route: 048
  2. NEURONTIN [Suspect]
     Indication: ARTHRALGIA
  3. KLONOPIN [Concomitant]
     Indication: NERVOUSNESS
     Dosage: UNK
     Route: 048
  4. KLONOPIN [Concomitant]
     Indication: SLEEP DISORDER

REACTIONS (2)
  - DENTAL CARIES [None]
  - SINUS OPERATION [None]
